FAERS Safety Report 21966616 (Version 2)
Quarter: 2024Q2

REPORT INFORMATION
  Report Type: Report from Study
  Country: US (occurrence: US)
  Receive Date: 20230208
  Receipt Date: 20240424
  Transmission Date: 20240715
  Serious: No
  Sender: FDA-Public Use
  Company Number: US-002147023-NVSC2023US024216

PATIENT
  Age: 80 Year
  Sex: Male

DRUGS (1)
  1. PROMACTA [Suspect]
     Active Substance: ELTROMBOPAG OLAMINE
     Indication: Product used for unknown indication
     Dosage: 100 MG, QD
     Route: 048
     Dates: start: 20230126

REACTIONS (3)
  - Intraocular pressure increased [Unknown]
  - Vision blurred [Unknown]
  - Nausea [Unknown]

NARRATIVE: CASE EVENT DATE: 20230130
